FAERS Safety Report 5400678-X (Version None)
Quarter: 2007Q3

REPORT INFORMATION
  Report Type: 
  Country: None (occurrence: None)
  Receive Date: 20070730
  Receipt Date: 20070716
  Transmission Date: 20080115
  Serious: Yes (Hospitalization)
  Sender: FDA-Public Use
  Company Number: DE-ELI_LILLY_AND_COMPANY-DE200707005224

PATIENT
  Age: 61 Year
  Sex: Male

DRUGS (6)
  1. ALIMTA [Suspect]
     Indication: NON-SMALL CELL LUNG CANCER
     Dosage: 500 MG/M2, UNKNOWN
     Route: 042
     Dates: start: 20070608
  2. DEXAMETHASONE [Concomitant]
     Indication: SUPPLEMENTATION THERAPY
     Dosage: UNK, UNKNOWN
     Route: 065
     Dates: start: 20070607, end: 20070609
  3. KEVATRIL [Concomitant]
     Dosage: UNK, UNKNOWN
     Route: 065
     Dates: start: 20070101
  4. ALLOPURINOL [Concomitant]
     Dosage: 100 MG, UNKNOWN
     Route: 065
     Dates: start: 20061030
  5. FOLIC ACID [Concomitant]
     Indication: SUPPLEMENTATION THERAPY
     Dosage: UNK, UNKNOWN
     Route: 065
     Dates: start: 20070601
  6. METOPROLOL SUCCINATE [Concomitant]
     Dosage: UNK, UNKNOWN
     Route: 065
     Dates: start: 20070601

REACTIONS (4)
  - ANOREXIA [None]
  - BLOOD CREATINE PHOSPHOKINASE INCREASED [None]
  - PRURITUS [None]
  - STOMATITIS [None]
